FAERS Safety Report 22531968 (Version 1)
Quarter: 2023Q2

REPORT INFORMATION
  Report Type: Report from Study
  Country: BR (occurrence: BR)
  Receive Date: 20230607
  Receipt Date: 20230607
  Transmission Date: 20230721
  Serious: Yes (Other)
  Sender: FDA-Public Use
  Company Number: BR-002147023-NVSC2023BR129525

PATIENT
  Age: 15 Year
  Sex: Male

DRUGS (1)
  1. OMNITROPE [Suspect]
     Active Substance: SOMATROPIN
     Indication: Product used for unknown indication
     Dosage: 3 DOSAGE FORM, 7 TIMES A WEEK
     Route: 065
     Dates: start: 2018, end: 202207

REACTIONS (3)
  - Joint dislocation [Unknown]
  - Gait disturbance [Unknown]
  - Osteitis [Unknown]

NARRATIVE: CASE EVENT DATE: 20220701
